FAERS Safety Report 14975897 (Version 1)
Quarter: 2018Q2

REPORT INFORMATION
  Report Type: Spontaneous
  Country: US (occurrence: US)
  Receive Date: 20180605
  Receipt Date: 20180605
  Transmission Date: 20180711
  Serious: Yes (Hospitalization)
  Sender: FDA-Public Use
  Company Number: US-BAUSCH-BL-2018-009384

PATIENT
  Age: 47 Year
  Sex: Male
  Weight: 113.5 kg

DRUGS (3)
  1. SILIQ [Suspect]
     Active Substance: BRODALUMAB
     Indication: PSORIASIS
     Dosage: EVERY 2 WEEKS
     Route: 065
     Dates: start: 20171101, end: 20180401
  2. INSULIN [Concomitant]
     Active Substance: INSULIN NOS
     Indication: DIABETES MELLITUS
     Route: 058
  3. SILIQ [Suspect]
     Active Substance: BRODALUMAB
     Route: 065
     Dates: start: 201804

REACTIONS (4)
  - Suicidal ideation [Unknown]
  - Psoriasis [Recovered/Resolved]
  - Depression [Recovered/Resolved]
  - Therapy non-responder [Recovered/Resolved]

NARRATIVE: CASE EVENT DATE: 20180326
